FAERS Safety Report 15297936 (Version 1)
Quarter: 2018Q3

REPORT INFORMATION
  Report Type: Spontaneous
  Country: PL (occurrence: PL)
  Receive Date: 20180820
  Receipt Date: 20180820
  Transmission Date: 20181010
  Serious: Yes (Death)
  Sender: FDA-Public Use
  Company Number: PL-JNJFOC-20180819660

PATIENT
  Age: 87 Year
  Sex: Female
  Weight: 75 kg

DRUGS (5)
  1. BISOCARD [Concomitant]
     Active Substance: BISOPROLOL
     Route: 065
  2. PANTOPRAZOLE [Concomitant]
     Active Substance: PANTOPRAZOLE
     Route: 065
  3. XARELTO [Suspect]
     Active Substance: RIVAROXABAN
     Indication: ATRIAL FIBRILLATION
     Route: 048
  4. SPIRONOL [Concomitant]
     Active Substance: SPIRONOLACTONE
     Route: 065
  5. PRENESSA [Concomitant]
     Active Substance: PERINDOPRIL
     Route: 048

REACTIONS (4)
  - Gastrointestinal haemorrhage [Fatal]
  - Shock [Fatal]
  - Respiratory failure [Fatal]
  - Cardiovascular insufficiency [Fatal]

NARRATIVE: CASE EVENT DATE: 20180709
